FAERS Safety Report 10342266 (Version 1)
Quarter: 2014Q3

REPORT INFORMATION
  Report Type: Spontaneous
  Country: BE (occurrence: BE)
  Receive Date: 20140725
  Receipt Date: 20140725
  Transmission Date: 20150326
  Serious: Yes (Hospitalization)
  Sender: FDA-Public Use
  Company Number: BE-JNJFOC-20140711470

PATIENT
  Age: 26 Year
  Sex: Female

DRUGS (5)
  1. MEDROL [Concomitant]
     Active Substance: METHYLPREDNISOLONE
     Dosage: DATE OF THERAPY REPORTED AS 17/07
     Route: 065
  2. REMICADE [Suspect]
     Active Substance: INFLIXIMAB
     Indication: CROHN^S DISEASE
     Dosage: START DOSE, FIRST ADMISSION
     Route: 042
     Dates: start: 20140716
  3. IMURAN [Concomitant]
     Active Substance: AZATHIOPRINE
     Dosage: DATE OF THERAPY REPORTED AS 17/07
     Route: 065
  4. STEOVIT D3 [Concomitant]
     Dosage: DATE OF THERAPY REPORTED AS 17/07
     Route: 065
  5. BIOCONDIL [Concomitant]
     Dosage: DATE OF THERAPY REPORTED AS 17/07 AND STOP DATE: PAUZED
     Route: 065

REACTIONS (1)
  - Wrong technique in drug usage process [Unknown]

NARRATIVE: CASE EVENT DATE: 20140716
